FAERS Safety Report 8250173-8 (Version None)
Quarter: 2012Q2

REPORT INFORMATION
  Report Type: 
  Country: None (occurrence: None)
  Receive Date: 20120402
  Receipt Date: 20120327
  Transmission Date: 20120825
  Serious: Yes (Death, Hospitalization)
  Sender: FDA-Public Use
  Company Number: JP-PFIZER INC-2011087429

PATIENT
  Age: 64 Year
  Sex: Male
  Weight: 50.8 kg

DRUGS (13)
  1. MAGMITT [Concomitant]
     Dosage: 250 MG, 3X/DAY
     Route: 048
     Dates: start: 20110225, end: 20110308
  2. APHTASOLON [Concomitant]
     Dosage: UNK
     Route: 061
     Dates: start: 20110222
  3. ZOLPIDEM [Concomitant]
     Dosage: 5 MEQ/L, 1X/DAY
     Route: 048
     Dates: end: 20110514
  4. POLARAMINE [Concomitant]
     Indication: PROPHYLAXIS
     Dosage: 5 MG, 1X/DAY
     Route: 042
  5. LOXOPROFEN [Concomitant]
     Indication: RENAL CELL CARCINOMA
     Dosage: 60 MG, 3X/DAY
     Route: 048
     Dates: start: 20110221, end: 20110308
  6. TEMSIROLIMUS [Suspect]
     Indication: RENAL CELL CARCINOMA
     Dosage: 25 MG, WEEKLY
     Dates: start: 20110215, end: 20110308
  7. SUTENT [Suspect]
     Indication: RENAL CELL CARCINOMA
     Dosage: UNK
     Dates: start: 20100324, end: 20110127
  8. LAMISIL [Concomitant]
     Dosage: UNK DOSE 1X/DAY
     Route: 061
     Dates: start: 20110408, end: 20110514
  9. PROCHLORPERAZINE [Concomitant]
     Indication: PROPHYLAXIS
     Dosage: 5 MG, 3X/DAY
     Route: 048
     Dates: start: 20110509
  10. OXYCONTIN [Concomitant]
     Dosage: 5 MG, 2X/DAY
     Route: 048
     Dates: start: 20110222, end: 20110328
  11. NIZORAL [Concomitant]
     Dosage: UNK
     Route: 061
     Dates: start: 20110224
  12. OXINORM [Concomitant]
     Dosage: UNK DOSE 1X/DAY
     Route: 048
     Dates: start: 20110329
  13. MUCOSTA [Concomitant]
     Indication: PROPHYLAXIS
     Dosage: 100 MG, 3X/DAY
     Route: 048
     Dates: start: 20110221, end: 20110308

REACTIONS (4)
  - NEOPLASM PROGRESSION [None]
  - INTERSTITIAL LUNG DISEASE [None]
  - DISEASE PROGRESSION [None]
  - RENAL CELL CARCINOMA [None]
